FAERS Safety Report 8243158-9 (Version None)
Quarter: 2012Q1

REPORT INFORMATION
  Report Type: 
  Country: None (occurrence: None)
  Receive Date: 20120329
  Receipt Date: 20120321
  Transmission Date: 20120608
  Serious: Yes (Death)
  Sender: FDA-Public Use
  Company Number: DK-NOVOPROD-347834

PATIENT
  Age: 48 Year
  Sex: Male
  Weight: 89 kg

DRUGS (2)
  1. VICTOZA [Suspect]
     Indication: TYPE 2 DIABETES MELLITUS
     Dosage: ADMINISTERED FOR 5 DAYS
     Dates: start: 20111104
  2. SIMVASTATIN [Concomitant]
     Indication: MYALGIA

REACTIONS (5)
  - GLYCOSYLATED HAEMOGLOBIN INCREASED [None]
  - ACUTE MYOCARDIAL INFARCTION [None]
  - NAUSEA [None]
  - VOMITING [None]
  - SUDDEN CARDIAC DEATH [None]
